FAERS Safety Report 7795811-9 (Version None)
Quarter: 2011Q4

REPORT INFORMATION
  Report Type: 
  Country: None (occurrence: None)
  Receive Date: 20111004
  Receipt Date: 20110922
  Transmission Date: 20120403
  Serious: Yes (Other)
  Sender: FDA-Public Use
  Company Number: US-JNJFOC-20110910075

PATIENT
  Age: 55 Year
  Sex: Female
  Weight: 70.31 kg

DRUGS (13)
  1. EXTRA STRENGTH TYLENOL [Suspect]
     Route: 048
  2. VITAMIN D [Concomitant]
     Indication: SUPPLEMENTATION THERAPY
     Route: 065
  3. SYNTHROID [Concomitant]
     Route: 065
     Dates: start: 20050101
  4. UNSPECIFIED PROTON PUMP INHIBITOR [Concomitant]
     Indication: GASTROOESOPHAGEAL REFLUX DISEASE
     Route: 065
  5. MECLIZINE [Concomitant]
     Indication: DIZZINESS
     Dosage: AS NEEDED
     Route: 065
  6. MECLIZINE [Concomitant]
     Indication: NAUSEA
     Dosage: AS NEEDED
     Route: 065
  7. TRICOR [Concomitant]
     Indication: BLOOD CHOLESTEROL INCREASED
     Route: 065
     Dates: start: 20040101
  8. EXTRA STRENGTH TYLENOL [Suspect]
     Indication: HEADACHE
     Route: 048
     Dates: start: 20060101
  9. POTASSIUM CITRATE [Concomitant]
     Indication: PROPHYLAXIS
     Route: 065
     Dates: start: 20110801
  10. SYNTHROID [Concomitant]
     Indication: HYPOTHYROIDISM
     Route: 065
     Dates: start: 20050101
  11. CENTRUM SILVER [Concomitant]
     Indication: SUPPLEMENTATION THERAPY
     Route: 065
  12. CITRACAL [Concomitant]
     Indication: OSTEOPOROSIS
     Route: 065
  13. OMEPRAZOLE [Concomitant]
     Indication: GASTROOESOPHAGEAL REFLUX DISEASE
     Route: 065
     Dates: start: 20040101

REACTIONS (3)
  - NEPHROLITHIASIS [None]
  - DEHYDRATION [None]
  - INCORRECT DRUG ADMINISTRATION DURATION [None]
